FAERS Safety Report 23362108 (Version 1)
Quarter: 2024Q1

REPORT INFORMATION
  Report Type: Report from Study
  Country: IN (occurrence: None)
  Receive Date: 20240103
  Receipt Date: 20240103
  Transmission Date: 20240410
  Serious: Yes (Death)
  Sender: FDA-Public Use
  Company Number: 2024A000226

PATIENT
  Age: 28018 Day
  Sex: Male

DRUGS (1)
  1. TAGRISSO [Suspect]
     Active Substance: OSIMERTINIB
     Indication: Prophylactic chemotherapy
     Route: 048
     Dates: end: 20230917

REACTIONS (1)
  - Death [Fatal]

NARRATIVE: CASE EVENT DATE: 20230917
